FAERS Safety Report 6917209-5 (Version None)
Quarter: 2010Q3

REPORT INFORMATION
  Report Type: 
  Country: None (occurrence: None)
  Receive Date: 20100804
  Receipt Date: 20100722
  Transmission Date: 20110219
  Serious: Yes (Other)
  Sender: FDA-Public Use
  Company Number: 7011845

PATIENT
  Age: 4 Year
  Sex: Male
  Weight: 11 kg

DRUGS (1)
  1. SOMATROPIN (SOMATROPIN) [Suspect]
     Indication: BLOOD GROWTH HORMONE DECREASED
     Dosage: 0.175 MG/KG, 1 IN 1 WK

REACTIONS (4)
  - INTRACRANIAL PRESSURE INCREASED [None]
  - PAPILLOEDEMA [None]
  - STRABISMUS [None]
  - VITH NERVE DISORDER [None]
